FAERS Safety Report 7572899-1 (Version None)
Quarter: 2011Q2

REPORT INFORMATION
  Report Type: 
  Country: None (occurrence: None)
  Receive Date: 20110627
  Receipt Date: 20110616
  Transmission Date: 20111010
  Serious: Yes (Disabling, Other)
  Sender: FDA-Public Use
  Company Number: CA-ELI_LILLY_AND_COMPANY-CA201106004698

PATIENT
  Sex: Male

DRUGS (13)
  1. ZYPREXA [Suspect]
     Indication: SCHIZOPHRENIA, PARANOID TYPE
     Dosage: 10 MG, EACH EVENING
     Dates: start: 20051201
  2. VALPROATE SODIUM [Concomitant]
  3. SEROQUEL [Concomitant]
  4. NITRAZEPAM [Concomitant]
  5. CLOPIXOL [Concomitant]
  6. LITHIUM CARBONATE [Concomitant]
  7. FLUANXOL [Concomitant]
  8. COGENTIN [Concomitant]
  9. LORAZEPAM [Concomitant]
  10. ZYPREXA ZYDIS [Suspect]
     Dosage: 5 MG, EACH EVENING
  11. KEMADRIN [Concomitant]
  12. ZYPREXA ZYDIS [Suspect]
     Indication: SCHIZOPHRENIA, PARANOID TYPE
     Dosage: 10 MG, EACH EVENING
     Dates: start: 20030701
  13. CLONAZEPAM [Concomitant]

REACTIONS (8)
  - BLINDNESS [None]
  - TYPE 2 DIABETES MELLITUS [None]
  - CHEILITIS [None]
  - HYPERCHOLESTEROLAEMIA [None]
  - HYPERGLYCAEMIA [None]
  - SKIN ULCER [None]
  - CATARACT [None]
  - HYPERTENSION [None]
